FAERS Safety Report 6327469-X (Version None)
Quarter: 2009Q3

REPORT INFORMATION
  Report Type: 
  Country: None (occurrence: None)
  Receive Date: 20090821
  Receipt Date: 20090812
  Transmission Date: 20100115
  Serious: Yes (Hospitalization)
  Sender: FDA-Public Use
  Company Number: GXKR2009PL09139

PATIENT
  Age: 19 Year
  Sex: Female

DRUGS (4)
  1. CARBAMAZEPINE [Suspect]
     Indication: BORDERLINE PERSONALITY DISORDER
     Dosage: 400 MG/DAY; 800 MG/DAY
  2. DOXYCYCLINE HYCLATE [Suspect]
     Indication: PHARYNGEAL INFLAMMATION
     Dosage: 100 MG, DEPOT
  3. ZUCLOPENTHIXOL (ZUCLOPENTHIXOL) [Suspect]
     Indication: BORDERLINE PERSONALITY DISORDER
     Dosage: 50 MG, INJECTION NOS
  4. DEXTROMETHORPHAN (DEXTROMETHORPHAN) [Concomitant]

REACTIONS (7)
  - APHTHOUS STOMATITIS [None]
  - CYANOSIS [None]
  - DRUG RASH WITH EOSINOPHILIA AND SYSTEMIC SYMPTOMS [None]
  - MUCOSAL EROSION [None]
  - PAROTID GLAND ENLARGEMENT [None]
  - PHOTOPHOBIA [None]
  - TONSILLAR HYPERTROPHY [None]
